FAERS Safety Report 17734051 (Version 10)
Quarter: 2022Q2

REPORT INFORMATION
  Report Type: Spontaneous
  Country: US (occurrence: US)
  Receive Date: 20200501
  Receipt Date: 20220603
  Transmission Date: 20220721
  Serious: Yes (Other)
  Sender: FDA-Public Use
  Company Number: US-PFIZER INC-2020174932

PATIENT
  Age: 61 Year
  Sex: Female
  Weight: 87.09 kg

DRUGS (1)
  1. IBRANCE [Suspect]
     Active Substance: PALBOCICLIB
     Indication: Breast cancer
     Dosage: 125 MG, 1X/DAY
     Route: 048
     Dates: start: 201812, end: 202006

REACTIONS (5)
  - Pneumonia [Recovered/Resolved]
  - White blood cell count decreased [Unknown]
  - Neoplasm progression [Unknown]
  - Weight increased [Unknown]
  - Tumour marker increased [Unknown]

NARRATIVE: CASE EVENT DATE: 20200501
